FAERS Safety Report 8083209-8 (Version None)
Quarter: 2012Q1

REPORT INFORMATION
  Report Type: 
  Country: None (occurrence: None)
  Receive Date: 20120127
  Receipt Date: 20110302
  Transmission Date: 20120608
  Serious: No
  Sender: FDA-Public Use
  Company Number: US-ABBOTT-11P-163-0708939-00

PATIENT
  Sex: Female
  Weight: 107.14 kg

DRUGS (4)
  1. HUMIRA [Suspect]
     Indication: CROHN'S DISEASE
     Route: 058
     Dates: start: 20060101, end: 20070101
  2. HUMIRA [Suspect]
     Indication: CROHN'S DISEASE
     Route: 058
     Dates: start: 20040101, end: 20060101
  3. HUMIRA [Suspect]
     Dates: start: 20070101
  4. HUMIRA [Suspect]

REACTIONS (1)
  - INJECTION SITE PAIN [None]
